FAERS Safety Report 5091286-1 (Version None)
Quarter: 2006Q3

REPORT INFORMATION
  Report Type: 
  Country: None (occurrence: None)
  Receive Date: 20060829
  Receipt Date: 20050829
  Transmission Date: 20061208
  Serious: Yes (Hospitalization)
  Sender: FDA-Public Use
  Company Number: 200512464JP

PATIENT
  Age: 43 Year
  Sex: Male

DRUGS (3)
  1. LASIX [Suspect]
     Indication: RENAL FAILURE ACUTE
     Route: 048
     Dates: start: 20050725, end: 20050901
  2. FERROMIA [Concomitant]
     Route: 048
     Dates: start: 20050725, end: 20050901
  3. ROHYPNOL [Concomitant]
     Route: 048
     Dates: start: 20050725, end: 20050901

REACTIONS (3)
  - DEMENTIA [None]
  - LEUKOENCEPHALOPATHY [None]
  - VASCULAR DEMENTIA [None]
